FAERS Safety Report 4284943-8 (Version None)
Quarter: 2004Q1

REPORT INFORMATION
  Report Type: 
  Country: None (occurrence: None)
  Receive Date: 20040204
  Receipt Date: 20040121
  Transmission Date: 20041129
  Serious: Yes (Hospitalization)
  Sender: FDA-Public Use
  Company Number: PHBS2004SI01119

PATIENT
  Age: 48 Year
  Sex: Male

DRUGS (3)
  1. CYCLOSPORINE [Suspect]
     Indication: RENAL TRANSPLANT
     Route: 065
     Dates: start: 19840320
  2. METHYLPREDNISOLONE [Suspect]
     Indication: RENAL TRANSPLANT
     Route: 065
     Dates: start: 19840320
  3. ANTIHYPERTENSIVES [Concomitant]

REACTIONS (22)
  - ANAEMIA [None]
  - ARTERITIS [None]
  - BACTERIAL PYELONEPHRITIS [None]
  - BIOPSY KIDNEY ABNORMAL [None]
  - BLOOD CREATININE INCREASED [None]
  - BLOOD UREA INCREASED [None]
  - C-REACTIVE PROTEIN INCREASED [None]
  - CHILLS [None]
  - COMPLICATIONS OF TRANSPLANT SURGERY [None]
  - GRAFT DYSFUNCTION [None]
  - HYPERTENSION [None]
  - KLEBSIELLA BACTERAEMIA [None]
  - LEUKOCYTOSIS [None]
  - MYOCARDIAL INFARCTION [None]
  - NEPHRECTOMY [None]
  - NEPHROPATHY TOXIC [None]
  - PROTEINURIA [None]
  - PYREXIA [None]
  - RED BLOOD CELL SEDIMENTATION RATE INCREASED [None]
  - RENAL ATROPHY [None]
  - RENAL CYST [None]
  - RENAL FAILURE [None]
